FAERS Safety Report 25048764 (Version 2)
Quarter: 2025Q2

REPORT INFORMATION
  Report Type: Spontaneous
  Country: FR (occurrence: FR)
  Receive Date: 20250307
  Receipt Date: 20250625
  Transmission Date: 20250717
  Serious: Yes (Other)
  Sender: ALK-ABELLO
  Company Number: FR-ALK-ABELLO A/S-2025AA000827

PATIENT

DRUGS (2)
  1. GRAZAX [Suspect]
     Active Substance: PHLEUM PRATENSE POLLEN
     Indication: Immune tolerance induction
     Route: 060
     Dates: start: 20250212, end: 20250226
  2. EBASTINE [Concomitant]
     Active Substance: EBASTINE

REACTIONS (2)
  - Asthmatic crisis [Recovered/Resolved]
  - Tongue disorder [Recovered/Resolved]

NARRATIVE: CASE EVENT DATE: 20250201
